FAERS Safety Report 20637615 (Version 2)
Quarter: 2022Q2

REPORT INFORMATION
  Report Type: Report from Study
  Country: CL (occurrence: CL)
  Receive Date: 20220325
  Receipt Date: 20220524
  Transmission Date: 20220721
  Serious: Yes (Hospitalization, Other)
  Sender: FDA-Public Use
  Company Number: CL-ABBVIE-22K-034-4325295-00

PATIENT
  Age: 60 Year
  Sex: Female

DRUGS (1)
  1. HUMIRA [Suspect]
     Active Substance: ADALIMUMAB
     Indication: Crohn^s disease
     Dosage: CITRATE FREE
     Route: 058
     Dates: start: 20190618

REACTIONS (9)
  - Intestinal obstruction [Recovering/Resolving]
  - Pulmonary embolism [Unknown]
  - Renal failure [Recovering/Resolving]
  - Ileostomy [Unknown]
  - Lung disorder [Unknown]
  - Abdominal discomfort [Unknown]
  - Unevaluable event [Unknown]
  - Secretion discharge [Unknown]
  - Bacterial infection [Unknown]

NARRATIVE: CASE EVENT DATE: 20220227
